FAERS Safety Report 23262866 (Version 2)
Quarter: 2023Q4

REPORT INFORMATION
  Report Type: Spontaneous
  Country: US (occurrence: US)
  Receive Date: 20231205
  Receipt Date: 20231218
  Transmission Date: 20240109
  Serious: No
  Sender: FDA-Public Use
  Company Number: US-VERTEX PHARMACEUTICALS-2023-008681

PATIENT
  Age: 10 Year
  Sex: Male
  Weight: 33 kg

DRUGS (12)
  1. TRIKAFTA [Suspect]
     Active Substance: ELEXACAFTOR\IVACAFTOR\TEZACAFTOR
     Indication: Cystic fibrosis
     Dosage: {30 KG DOSE
     Route: 048
     Dates: start: 202106
  2. TRIKAFTA [Suspect]
     Active Substance: ELEXACAFTOR\IVACAFTOR\TEZACAFTOR
     Dosage: ADULT DOSE: }30 KG DOSE
     Route: 048
     Dates: start: 202210, end: 20230530
  3. TRIKAFTA [Suspect]
     Active Substance: ELEXACAFTOR\IVACAFTOR\TEZACAFTOR
     Dosage: LOWER DOSE: {30 KG DOSE
     Route: 048
     Dates: start: 20230530
  4. PULMOZYME [Concomitant]
     Active Substance: DORNASE ALFA
  5. FLUTICASONE PROPIONATE [Concomitant]
     Active Substance: FLUTICASONE PROPIONATE
     Indication: Nasal congestion
     Dosage: 1 SPRAY/NOSTRIL, PRN
  6. ALBUTEROL SULFATE [Concomitant]
     Active Substance: ALBUTEROL SULFATE
  7. CREON [Concomitant]
     Active Substance: PANCRELIPASE AMYLASE\PANCRELIPASE LIPASE\PANCRELIPASE PROTEASE
     Dosage: 12K-38K-60 CAPSULE DR
  8. PANCRELIPASE [Concomitant]
     Active Substance: PANCRELIPASE
     Dosage: 10K 3 CAPS WITH MEALS, 1-2 CAPS WITH SNACKS, QD
  9. ALBUTEROL [Concomitant]
     Active Substance: ALBUTEROL
     Indication: Respiratory symptom
     Dosage: 2P WITH SPACER BID AND QID PRN
  10. SODIUM CHLORIDE [Concomitant]
     Active Substance: SODIUM CHLORIDE
     Indication: Respiratory symptom
     Dosage: 1 NEB BID AND QID PRN
     Route: 055
  11. DORNASE ALFA [Concomitant]
     Active Substance: DORNASE ALFA
     Dosage: 2.5 MG, QD
     Route: 055
  12. POLYETHYLENE GLYCOL [Concomitant]
     Active Substance: POLYETHYLENE GLYCOL
     Indication: Constipation
     Dosage: 1 CAP, PRN

REACTIONS (1)
  - Cataract [Recovering/Resolving]

NARRATIVE: CASE EVENT DATE: 20230523
